FAERS Safety Report 6568463-3 (Version None)
Quarter: 2010Q1

REPORT INFORMATION
  Report Type: 
  Country: None (occurrence: None)
  Receive Date: 20100203
  Receipt Date: 20100128
  Transmission Date: 20100710
  Serious: Yes (Disabling)
  Sender: FDA-Public Use
  Company Number: A0842452A

PATIENT
  Age: 38 Year
  Sex: Female

DRUGS (4)
  1. LAMICTAL [Suspect]
     Dosage: 50MG PER DAY
     Route: 065
  2. TOPAMAX [Concomitant]
  3. NADOLOL [Concomitant]
  4. IMITREX [Concomitant]

REACTIONS (4)
  - DYSKINESIA [None]
  - JOINT STIFFNESS [None]
  - MUSCLE TIGHTNESS [None]
  - PAIN IN JAW [None]
